FAERS Safety Report 6912600 (Version 4)
Quarter: 2013Q2

REPORT INFORMATION
  Report Type: Spontaneous
  Country: FR (occurrence: None)
  Receive Date: 20090203
  Receipt Date: 20130624
  Transmission Date: 20140414
  Serious: Yes (Hospitalization)
  Sender: FDA-Public Use
  Company Number: 156620

PATIENT
  Age: 55 Year
  Sex: Male
  Weight: 80 kg

DRUGS (5)
  1. CARBOPLATIN [Suspect]
     Indication: SMALL CELL LUNG CANCER
     Dosage: 626 MG, INTRAVENOUS (NOT OTHERWISE SPECIFIED)
     Route: 042
     Dates: start: 20081124, end: 20081124
  2. ETOPOSIDE [Suspect]
     Indication: SMALL CELL LUNG CANCER
     Dosage: 196 MG, INTRAVENOUS (NOT OTHERWISE SPECIFIED)
     Route: 042
     Dates: start: 20081124, end: 20081124
  3. METOCLOPRAMIDE [Concomitant]
  4. CLORAZEPATE DIPOTASSIUM [Concomitant]
  5. ONDANSETRON HYDROCHLORIDE [Concomitant]

REACTIONS (5)
  - CHILLS [None]
  - LIVEDO RETICULARIS [None]
  - PALLOR [None]
  - TACHYCARDIA [None]
  - BLOOD PRESSURE INCREASED [None]
